FAERS Safety Report 19437679 (Version 1)
Quarter: 2021Q2

REPORT INFORMATION
  Report Type: Spontaneous
  Country: US (occurrence: US)
  Receive Date: 20210619
  Receipt Date: 20210619
  Transmission Date: 20210717
  Serious: Yes (Hospitalization, Other)
  Sender: FDA-Public Use
  Company Number: US-AUROBINDO-AUR-APL-2021-024866

PATIENT
  Age: 18 Month
  Sex: Female

DRUGS (1)
  1. IBUPROFEN. [Suspect]
     Active Substance: IBUPROFEN
     Indication: PYREXIA
     Dosage: UNK; 2 DOSES
     Route: 065

REACTIONS (4)
  - Haematemesis [Unknown]
  - Gastric mucosal hypertrophy [Unknown]
  - Gastrointestinal haemorrhage [Recovered/Resolved]
  - Gastritis [Unknown]
